FAERS Safety Report 6309917-4 (Version None)
Quarter: 2009Q3

REPORT INFORMATION
  Report Type: 
  Country: None (occurrence: None)
  Receive Date: 20090814
  Receipt Date: 20090805
  Transmission Date: 20100115
  Serious: Yes (Hospitalization)
  Sender: FDA-Public Use
  Company Number: A0801955A

PATIENT

DRUGS (2)
  1. LAMICTAL [Suspect]
     Dosage: 200MGD PER DAY
     Route: 048
     Dates: start: 20050101
  2. UNKNOWN [Concomitant]

REACTIONS (3)
  - HYPERGLYCAEMIA [None]
  - POLYDIPSIA [None]
  - POLYURIA [None]
